FAERS Safety Report 9747638 (Version 1)
Quarter: 2013Q4

REPORT INFORMATION
  Report Type: Spontaneous
  Country: US (occurrence: None)
  Receive Date: 20131206
  Receipt Date: 20131206
  Transmission Date: 20140711
  Serious: Yes (Death)
  Sender: FDA-Public Use
  Company Number: 2013P1021572

PATIENT
  Age: 22 Year
  Sex: Male

DRUGS (2)
  1. ASPIRIN [Suspect]
  2. ETHANOL [Suspect]

REACTIONS (1)
  - Toxicity to various agents [None]
